FAERS Safety Report 7017436-5 (Version None)
Quarter: 2010Q3

REPORT INFORMATION
  Report Type: 
  Country: None (occurrence: None)
  Receive Date: 20100928
  Receipt Date: 20100922
  Transmission Date: 20110219
  Serious: Yes (Death)
  Sender: FDA-Public Use
  Company Number: PHHY2010MX63144

PATIENT
  Sex: Female

DRUGS (2)
  1. EXFORGE [Suspect]
     Dosage: ONE TABLET (160/10 MG) DAILY
  2. DIGOXIN [Concomitant]

REACTIONS (1)
  - RESPIRATORY ARREST [None]
